FAERS Safety Report 6955275-1 (Version None)
Quarter: 2010Q3

REPORT INFORMATION
  Report Type: 
  Country: None (occurrence: None)
  Receive Date: 20100830
  Receipt Date: 20100816
  Transmission Date: 20110219
  Serious: Yes (Hospitalization)
  Sender: FDA-Public Use
  Company Number: PHHY2010FR51756

PATIENT
  Sex: Female
  Weight: 60 kg

DRUGS (6)
  1. CGP 57148B T35717+ [Suspect]
     Indication: CHRONIC MYELOID LEUKAEMIA
     Dosage: 400 MG, QD
     Dates: start: 20070209
  2. CANDESARTAN CILEXETIL/HYDROCHLOROTHIAZIDE (ATACAND HCT) [Concomitant]
     Dosage: 16 MG, QD
  3. LEVOTHYROXINE SODIUM [Concomitant]
     Dosage: 7.5 MCG DAILY
  4. VASTAREL [Concomitant]
     Dosage: 20 MG, BID
  5. SPECIAFOLDINE [Concomitant]
     Dosage: 5 MG, TID
  6. MOTILIUM [Concomitant]
     Dosage: 1 DF, TID

REACTIONS (2)
  - OSTEITIS [None]
  - STAPHYLOCOCCAL INFECTION [None]
